FAERS Safety Report 20380370 (Version 3)
Quarter: 2022Q3

REPORT INFORMATION
  Report Type: Report from Study
  Country: BR (occurrence: BR)
  Receive Date: 20220127
  Receipt Date: 20220713
  Transmission Date: 20221027
  Serious: Yes (Other)
  Sender: FDA-Public Use
  Company Number: BR-JNJFOC-20220138620

PATIENT
  Age: 20 Year
  Sex: Female
  Weight: 55 kg

DRUGS (2)
  1. REMICADE [Suspect]
     Active Substance: INFLIXIMAB
     Indication: Crohn^s disease
     Dosage: DOSAGE 275 MG IN WEEK 0, 2 AND 6
     Route: 041
     Dates: start: 20211027
  2. REMICADE [Suspect]
     Active Substance: INFLIXIMAB
     Dosage: DOSAGE 275 MG IN WEEK 0, 2 AND 6
     Route: 042
     Dates: start: 20211110

REACTIONS (2)
  - Pulmonary tuberculosis [Unknown]
  - Extrapulmonary tuberculosis [Unknown]

NARRATIVE: CASE EVENT DATE: 20211101
